FAERS Safety Report 23744698 (Version 2)
Quarter: 2024Q2

REPORT INFORMATION
  Report Type: Spontaneous
  Country: HU (occurrence: HU)
  Receive Date: 20240415
  Receipt Date: 20240521
  Transmission Date: 20240716
  Serious: Yes (Death, Other)
  Sender: FDA-Public Use
  Company Number: HU-ELI_LILLY_AND_COMPANY-HU202404003584

PATIENT
  Age: 59 Year
  Sex: Male

DRUGS (4)
  1. TALTZ [Suspect]
     Active Substance: IXEKIZUMAB
     Indication: Psoriasis
     Dosage: UNK UNK, UNKNOWN
     Route: 065
     Dates: start: 201708, end: 201807
  2. ACITRETIN [Concomitant]
     Active Substance: ACITRETIN
     Indication: Product used for unknown indication
     Dosage: 25 MG, DAILY
     Route: 065
  3. ACITRETIN [Concomitant]
     Active Substance: ACITRETIN
     Dosage: 20 MG, DAILY
     Route: 065
     Dates: start: 20190221
  4. ELOSALIC [Concomitant]
     Indication: Psoriasis
     Dosage: UNK, UNKNOWN
     Route: 065

REACTIONS (1)
  - Metastatic squamous cell carcinoma [Fatal]

NARRATIVE: CASE EVENT DATE: 20180801
